FAERS Safety Report 26121963 (Version 1)
Quarter: 2025Q4

REPORT INFORMATION
  Report Type: Spontaneous
  Country: EU (occurrence: EU)
  Receive Date: 20251204
  Receipt Date: 20251204
  Transmission Date: 20260118
  Serious: Yes (Other)
  Sender: MYLAN
  Company Number: None

PATIENT
  Age: 70 Year
  Sex: Female
  Weight: 62 kg

DRUGS (3)
  1. LENALIDOMIDE [Suspect]
     Active Substance: LENALIDOMIDE
     Indication: Plasma cell myeloma
     Dosage: 5 MILLIGRAM, QD (1X PER DAY FOR 3 WEEKS, THEN 1 WEEK OFF)
     Dates: start: 20221120, end: 20241104
  2. DARATUMUMAB [Suspect]
     Active Substance: DARATUMUMAB
     Indication: Plasma cell myeloma
     Dosage: 1 DOSAGE FORM, 28D CYCLE
     Dates: start: 20221120
  3. DEXAMETHASONE [Suspect]
     Active Substance: DEXAMETHASONE
     Indication: Plasma cell myeloma
     Dosage: 10 MILLIGRAM, QW (1X PER WEEK)
     Dates: start: 20221120

REACTIONS (2)
  - Neuropathy peripheral [Not Recovered/Not Resolved]
  - Amnesia [Not Recovered/Not Resolved]
